FAERS Safety Report 9495161 (Version 1)
Quarter: 2013Q3

REPORT INFORMATION
  Report Type: Spontaneous
  Country: US (occurrence: US)
  Receive Date: 20130903
  Receipt Date: 20130903
  Transmission Date: 20140515
  Serious: Yes (Other)
  Sender: FDA-Public Use
  Company Number: US-GENZYME-RENA-1002144

PATIENT
  Sex: Male

DRUGS (1)
  1. RENVELA [Suspect]
     Indication: HYPERPHOSPHATAEMIA
     Dosage: UNK
     Route: 065

REACTIONS (5)
  - Catheter site infection [Unknown]
  - Chest pain [Unknown]
  - Jaundice [Unknown]
  - Cough [Unknown]
  - Musculoskeletal pain [Recovered/Resolved]
